FAERS Safety Report 8773066 (Version 1)
Quarter: 2012Q4

REPORT INFORMATION
  Report Type: 
  Country: NL (occurrence: NL)
  Receive Date: 20120907
  Receipt Date: 20120907
  Transmission Date: 20130627
  Serious: Yes (Other)
  Sender: FDA-Public Use
  Company Number: NL-UCBSA-064861

PATIENT
  Age: 35 Year
  Sex: Female

DRUGS (4)
  1. VIMPAT [Suspect]
     Indication: EPILEPSY
     Dosage: TOTAL DAILY DOSE: 250 MG
     Route: 048
     Dates: start: 2009, end: 2012
  2. LYRICA [Concomitant]
     Indication: EPILEPSY
  3. LAMICTAL [Concomitant]
     Indication: EPILEPSY
  4. FRISIUM [Concomitant]
     Indication: EPILEPSY

REACTIONS (3)
  - Dizziness [Recovered/Resolved]
  - Somnolence [Recovered/Resolved]
  - Weight increased [Recovered/Resolved]
